FAERS Safety Report 22400153 (Version 1)
Quarter: 2023Q2

REPORT INFORMATION
  Report Type: Spontaneous
  Country: CN (occurrence: CN)
  Receive Date: 20230602
  Receipt Date: 20230602
  Transmission Date: 20230721
  Serious: Yes (Other)
  Sender: FDA-Public Use
  Company Number: CN-SUN PHARMACEUTICAL INDUSTRIES LTD-2023R1-390180

PATIENT
  Age: 59 Year
  Sex: Male

DRUGS (8)
  1. OXALIPLATIN [Suspect]
     Active Substance: OXALIPLATIN
     Indication: Gastric cancer
     Dosage: UNK
     Route: 042
  2. OXALIPLATIN [Suspect]
     Active Substance: OXALIPLATIN
     Indication: Metastases to lymph nodes
  3. OTERACIL POTASSIUM [Concomitant]
     Active Substance: OTERACIL POTASSIUM
     Indication: Gastric cancer
     Dosage: 60 MILLIGRAM, QD
     Route: 065
  4. OTERACIL POTASSIUM [Concomitant]
     Active Substance: OTERACIL POTASSIUM
     Indication: Metastases to lymph nodes
  5. GIMERACIL [Concomitant]
     Active Substance: GIMERACIL
     Indication: Gastric cancer
     Dosage: UNK
     Route: 065
  6. GIMERACIL [Concomitant]
     Active Substance: GIMERACIL
     Indication: Metastases to lymph nodes
  7. TEGAFUR [Concomitant]
     Active Substance: TEGAFUR
     Indication: Gastric cancer
     Dosage: UNK
     Route: 048
  8. TEGAFUR [Concomitant]
     Active Substance: TEGAFUR
     Indication: Metastases to lymph nodes

REACTIONS (2)
  - Deafness neurosensory [Not Recovered/Not Resolved]
  - Optic neuritis [Recovered/Resolved]
